FAERS Safety Report 7288131-2 (Version None)
Quarter: 2011Q1

REPORT INFORMATION
  Report Type: 
  Country: None (occurrence: None)
  Receive Date: 20110211
  Receipt Date: 20110204
  Transmission Date: 20110831
  Serious: Yes (Other)
  Sender: FDA-Public Use
  Company Number: NO-JNJFOC-20110201920

PATIENT
  Age: 36 Year
  Sex: Female

DRUGS (1)
  1. TOPAMAX [Suspect]
     Indication: EPILEPSY
     Dosage: 50 MG X 2 (MORNING AND EVENING)
     Route: 048

REACTIONS (2)
  - GOITRE [None]
  - BURNING SENSATION [None]
